FAERS Safety Report 19216339 (Version 1)
Quarter: 2021Q2

REPORT INFORMATION
  Report Type: Spontaneous
  Country: US (occurrence: US)
  Receive Date: 20210504
  Receipt Date: 20210504
  Transmission Date: 20210717
  Serious: Yes (Other)
  Sender: FDA-Public Use
  Company Number: None

PATIENT
  Age: 27 Year
  Sex: Female
  Weight: 83.25 kg

DRUGS (1)
  1. LEVOFLOXACIN. [Suspect]
     Active Substance: LEVOFLOXACIN
     Indication: WOUND
     Dosage: ?          QUANTITY:7 TABLET(S);?
     Route: 048
     Dates: start: 20210502, end: 20210503

REACTIONS (5)
  - Hallucination, visual [None]
  - Restlessness [None]
  - Panic attack [None]
  - Anxiety [None]
  - Hyperventilation [None]

NARRATIVE: CASE EVENT DATE: 20210503
